FAERS Safety Report 11884924 (Version 2)
Quarter: 2016Q2

REPORT INFORMATION
  Report Type: Spontaneous
  Country: ES (occurrence: ES)
  Receive Date: 20160104
  Receipt Date: 20160427
  Transmission Date: 20160815
  Serious: Yes (Other)
  Sender: FDA-Public Use
  Company Number: ES-ASTELLAS-2015US048196

PATIENT
  Age: 51 Year
  Sex: Male

DRUGS (3)
  1. TACROLIMUS. [Suspect]
     Active Substance: TACROLIMUS
     Indication: PRODUCT USED FOR UNKNOWN INDICATION
     Dosage: UNK, UNKNOWN FREQ.
     Route: 065
  2. TACROLIMUS. [Suspect]
     Active Substance: TACROLIMUS
     Route: 065
  3. TACROLIMUS. [Suspect]
     Active Substance: TACROLIMUS
     Route: 065

REACTIONS (5)
  - Interstitial lung disease [Recovered/Resolved]
  - Gynaecomastia [Not Recovered/Not Resolved]
  - Blood creatine phosphokinase increased [Recovered/Resolved]
  - Asthenia [Recovered/Resolved]
  - Arthritis [Recovered/Resolved]
